FAERS Safety Report 21858404 (Version 1)
Quarter: 2023Q1

REPORT INFORMATION
  Report Type: Spontaneous
  Country: US (occurrence: US)
  Receive Date: 20230113
  Receipt Date: 20230113
  Transmission Date: 20230417
  Serious: Yes (Hospitalization)
  Sender: FDA-Public Use
  Company Number: US-SA-SAC20230112001495

PATIENT
  Sex: Male

DRUGS (2)
  1. DUPIXENT [Suspect]
     Active Substance: DUPILUMAB
     Indication: Dermatitis atopic
     Dosage: 300 MG , QOW
     Route: 058
     Dates: start: 20210825
  2. PREDNISONE [Concomitant]
     Active Substance: PREDNISONE
     Dosage: UNK

REACTIONS (3)
  - Eczema [Not Recovered/Not Resolved]
  - Gait inability [Not Recovered/Not Resolved]
  - Leg amputation [Unknown]
